FAERS Safety Report 9720616 (Version 3)
Quarter: 2014Q1

REPORT INFORMATION
  Report Type: Spontaneous
  Country: US (occurrence: US)
  Receive Date: 20131129
  Receipt Date: 20140124
  Transmission Date: 20141002
  Serious: Yes (Other)
  Sender: FDA-Public Use
  Company Number: PHEH2013US024463

PATIENT
  Age: 10 Year
  Sex: Male
  Weight: 33 kg

DRUGS (8)
  1. FOCALIN XR [Suspect]
     Indication: ATTENTION DEFICIT/HYPERACTIVITY DISORDER
     Dosage: 5 MG, QD
     Route: 048
     Dates: start: 201006
  2. FOCALIN XR [Suspect]
     Dosage: 10 MG, QD
     Route: 048
  3. FOCALIN XR [Suspect]
     Dosage: 15 MG, QD
     Route: 048
     Dates: start: 201306, end: 20131118
  4. PROZAC [Concomitant]
     Indication: ANXIETY
     Dosage: 20 MG, QD
     Route: 048
  5. PROZAC [Concomitant]
     Dosage: 10 MG, UNK
     Route: 048
     Dates: start: 201306
  6. VITA GUMMYS IRON [Concomitant]
     Dosage: UNK UKN, QD
  7. VITA GUMMYS VITAMIN C [Concomitant]
     Dosage: UNK UKN, QD
  8. CETIRIZINE [Concomitant]
     Dosage: UNK UKN, UNK

REACTIONS (9)
  - Orthostatic hypotension [Unknown]
  - Syncope [Unknown]
  - Heart rate abnormal [Unknown]
  - Dizziness [Recovered/Resolved]
  - Vertigo [Unknown]
  - Mydriasis [Unknown]
  - Hyperhidrosis [Unknown]
  - Insomnia [Recovered/Resolved]
  - Palpitations [Recovered/Resolved]
